FAERS Safety Report 10595929 (Version 1)
Quarter: 2014Q4

REPORT INFORMATION
  Report Type: Spontaneous
  Country: DE (occurrence: DE)
  Receive Date: 20141120
  Receipt Date: 20141120
  Transmission Date: 20150529
  Serious: Yes (Hospitalization, Other)
  Sender: FDA-Public Use
  Company Number: DE-PFIZER INC-2014317636

PATIENT
  Age: 27 Year
  Sex: Male

DRUGS (18)
  1. MEDIKINET [Suspect]
     Active Substance: METHYLPHENIDATE
     Dosage: 20 MG, 1X/DAY
     Route: 048
     Dates: start: 20140601, end: 20140714
  2. SERTRALINE HCL [Suspect]
     Active Substance: SERTRALINE HYDROCHLORIDE
     Dosage: 75 MG, 1X/DAY
     Route: 048
     Dates: start: 20140728, end: 20140730
  3. SERTRALINE HCL [Suspect]
     Active Substance: SERTRALINE HYDROCHLORIDE
     Dosage: 175 MG, 1X/DAY
     Route: 048
     Dates: start: 20140909, end: 20140912
  4. SERTRALINE HCL [Suspect]
     Active Substance: SERTRALINE HYDROCHLORIDE
     Dosage: 150 MG, 1X/DAY
     Route: 048
     Dates: start: 20140913, end: 20140915
  5. MEDIKINET [Suspect]
     Active Substance: METHYLPHENIDATE
     Dosage: 25 MG, 1XDAY
     Route: 048
     Dates: start: 20140715, end: 20140716
  6. MEDIKINET [Suspect]
     Active Substance: METHYLPHENIDATE
     Dosage: 35 MG, 1X/DAY
     Route: 048
     Dates: start: 20140721, end: 20140723
  7. SERTRALINE HCL [Suspect]
     Active Substance: SERTRALINE HYDROCHLORIDE
     Dosage: 50 MG, 1X/DAY
     Route: 048
     Dates: start: 20140724, end: 20140727
  8. MEDIKINET [Suspect]
     Active Substance: METHYLPHENIDATE
     Dosage: 50 MG, 1X/DAY
     Route: 048
     Dates: start: 20140814, end: 20140827
  9. SERTRALINE HCL [Suspect]
     Active Substance: SERTRALINE HYDROCHLORIDE
     Dosage: 100 MG, 1X/DAY
     Route: 048
     Dates: start: 20140731, end: 20140811
  10. SERTRALINE HCL [Suspect]
     Active Substance: SERTRALINE HYDROCHLORIDE
     Dosage: 150 MG, 1X/DAY
     Route: 048
     Dates: start: 20140812, end: 20140908
  11. MEDIKINET [Suspect]
     Active Substance: METHYLPHENIDATE
     Dosage: 30 MG, 1X/DAY
     Route: 048
     Dates: start: 20140717, end: 20140720
  12. SERTRALINE HCL [Suspect]
     Active Substance: SERTRALINE HYDROCHLORIDE
     Dosage: 100 MG, 1X/DAY
     Route: 048
     Dates: start: 20140916, end: 20140917
  13. SERTRALINE HCL [Suspect]
     Active Substance: SERTRALINE HYDROCHLORIDE
     Dosage: 50 MG, 1X/DAY
     Route: 048
     Dates: start: 20140922, end: 2014
  14. MEDIKINET [Suspect]
     Active Substance: METHYLPHENIDATE
     Dosage: 40 MG, 1X/DAY
     Route: 048
     Dates: start: 20140724, end: 20140811
  15. SERTRALINE HCL [Suspect]
     Active Substance: SERTRALINE HYDROCHLORIDE
     Dosage: 25 MG, 1X/DAY
     Route: 048
     Dates: start: 20140722, end: 20140723
  16. SERTRALINE HCL [Suspect]
     Active Substance: SERTRALINE HYDROCHLORIDE
     Dosage: 75 MG, 1X/DAY
     Route: 048
     Dates: start: 20140918, end: 20140921
  17. MEDIKINET [Suspect]
     Active Substance: METHYLPHENIDATE
     Dosage: 45 MG, 1X/DAY
     Route: 048
     Dates: start: 20140812, end: 20140813
  18. MEDIKINET [Suspect]
     Active Substance: METHYLPHENIDATE
     Dosage: 55 MG, 1X/DAY
     Route: 048
     Dates: start: 20140828

REACTIONS (4)
  - Restlessness [Recovered/Resolved]
  - Depressed mood [Recovering/Resolving]
  - Suicide attempt [Recovered/Resolved]
  - Suicidal ideation [Recovered/Resolved]

NARRATIVE: CASE EVENT DATE: 2014
